FAERS Safety Report 5189955-8 (Version None)
Quarter: 2006Q4

REPORT INFORMATION
  Report Type: 
  Country: None (occurrence: None)
  Receive Date: 20061215
  Receipt Date: 20061204
  Transmission Date: 20070319
  Serious: Yes (Other)
  Sender: FDA-Public Use
  Company Number: 2006149822

PATIENT
  Age: 50 Year
  Sex: Female

DRUGS (2)
  1. ATORVASTATIN CALCIUM [Suspect]
     Dosage: 20 MG (1 IN 1 D), ORAL
     Route: 048
  2. CEFUROXIME [Suspect]
     Dosage: ORAL
     Route: 048
     Dates: start: 20061101, end: 20061101

REACTIONS (2)
  - ANAPHYLACTIC SHOCK [None]
  - PARAESTHESIA [None]
